FAERS Safety Report 13514613 (Version 2)
Quarter: 2017Q2

REPORT INFORMATION
  Report Type: Spontaneous
  Country: GB (occurrence: GB)
  Receive Date: 20170504
  Receipt Date: 20170513
  Transmission Date: 20170830
  Serious: Yes (Life-Threatening, Hospitalization, Other)
  Sender: FDA-Public Use
  Company Number: GB-GLENMARK PHARMACEUTICALS-2017GMK027303

PATIENT
  Age: 20 Year
  Sex: Female

DRUGS (2)
  1. VITAMIN K NOS [Suspect]
     Active Substance: DIETARY SUPPLEMENT\ MENAQUINONE 6\PHYTONADIONE
     Indication: CHOLESTASIS OF PREGNANCY
     Dosage: UNK
     Route: 065
  2. URSODEOXYCHOLIC ACID [Suspect]
     Active Substance: URSODIOL
     Indication: CHOLESTASIS OF PREGNANCY
     Dosage: UNK
     Route: 065

REACTIONS (6)
  - Drug ineffective [Unknown]
  - Mental disorder [Unknown]
  - Caesarean section [None]
  - Premature delivery [None]
  - Total bile acids increased [None]
  - Maternal exposure during pregnancy [Unknown]
